FAERS Safety Report 5745453-1 (Version None)
Quarter: 2008Q2

REPORT INFORMATION
  Report Type: 
  Country: None (occurrence: None)
  Receive Date: 20080519
  Receipt Date: 20080122
  Transmission Date: 20081010
  Serious: No
  Sender: FDA-Public Use
  Company Number: TPA2007A02522

PATIENT
  Age: 45 Year
  Sex: Female
  Weight: 88.4514 kg

DRUGS (10)
  1. ROZEREM [Suspect]
     Indication: INSOMNIA
     Dosage: 8 MG, QHS, PER ORAL
     Route: 048
     Dates: start: 20071217, end: 20080103
  2. NABUMETONE [Concomitant]
  3. ZYRTEC [Concomitant]
  4. SINGULAIR [Concomitant]
  5. AMITIZA [Concomitant]
  6. THYROID (THYROID THERAPY) [Concomitant]
  7. TRAMADOL HCL [Concomitant]
  8. FLEXERIL [Concomitant]
  9. CYMBALTA [Concomitant]
  10. OPTIVE DROPS (TETRYZOLINE HYDROCHLORIDE) (EYE DROPS) [Concomitant]

REACTIONS (3)
  - INITIAL INSOMNIA [None]
  - MIDDLE INSOMNIA [None]
  - PAIN IN EXTREMITY [None]
